FAERS Safety Report 4451434-0 (Version None)
Quarter: 2004Q3

REPORT INFORMATION
  Report Type: 
  Country: None (occurrence: None)
  Receive Date: 20040916
  Receipt Date: 20040907
  Transmission Date: 20050211
  Serious: Yes (Other)
  Sender: FDA-Public Use
  Company Number: FR-ROCHE-379722

PATIENT
  Age: 3 Hour
  Sex: Female

DRUGS (2)
  1. NICARDIPINE HCL [Suspect]
     Indication: DRUG USE FOR UNKNOWN INDICATION
     Route: 063
     Dates: start: 20040720
  2. METHYLDOPA [Concomitant]
     Dates: start: 20040720

REACTIONS (4)
  - CONSTIPATION [None]
  - DRUG EXPOSURE VIA BREAST MILK [None]
  - HAEMATEMESIS [None]
  - VOMITING NEONATAL [None]
